FAERS Safety Report 5320328-0 (Version None)
Quarter: 2007Q2

REPORT INFORMATION
  Report Type: 
  Country: None (occurrence: None)
  Receive Date: 20070509
  Receipt Date: 20070504
  Transmission Date: 20071010
  Serious: Yes (Hospitalization)
  Sender: FDA-Public Use
  Company Number: BEWYE406108FEB05

PATIENT
  Sex: Male

DRUGS (38)
  1. SIROLIMUS [Suspect]
     Indication: PROPHYLAXIS AGAINST TRANSPLANT REJECTION
     Route: 048
     Dates: start: 20050105, end: 20050105
  2. SIROLIMUS [Suspect]
     Route: 048
     Dates: start: 20050106, end: 20050111
  3. SIROLIMUS [Suspect]
     Route: 048
     Dates: start: 20050112, end: 20050127
  4. SIROLIMUS [Suspect]
     Route: 048
     Dates: start: 20050128, end: 20050209
  5. SIROLIMUS [Suspect]
     Route: 048
     Dates: start: 20050210, end: 20050418
  6. SIROLIMUS [Suspect]
     Route: 048
     Dates: start: 20050419, end: 20050426
  7. SIROLIMUS [Suspect]
     Route: 048
     Dates: start: 20050427, end: 20050509
  8. SIROLIMUS [Suspect]
     Dates: start: 20050510, end: 20050816
  9. DACLIZUMAB [Concomitant]
     Dates: start: 20050104, end: 20050104
  10. DACLIZUMAB [Concomitant]
     Dates: start: 20050115, end: 20050115
  11. MEDROL [Concomitant]
     Indication: PROPHYLAXIS AGAINST TRANSPLANT REJECTION
     Route: 048
     Dates: start: 20050106, end: 20050203
  12. MEDROL [Concomitant]
     Route: 048
     Dates: start: 20050204, end: 20050411
  13. MEDROL [Concomitant]
     Route: 048
     Dates: start: 20050412, end: 20050620
  14. MEDROL [Concomitant]
     Route: 048
     Dates: start: 20050621, end: 20050816
  15. TACROLIMUS [Concomitant]
     Indication: PROPHYLAXIS AGAINST TRANSPLANT REJECTION
     Route: 048
     Dates: start: 20050104, end: 20050105
  16. TACROLIMUS [Concomitant]
     Route: 048
     Dates: start: 20050106, end: 20050106
  17. TACROLIMUS [Concomitant]
     Route: 048
     Dates: start: 20050107, end: 20050109
  18. TACROLIMUS [Concomitant]
     Route: 048
     Dates: start: 20050110, end: 20050110
  19. TACROLIMUS [Concomitant]
     Route: 048
     Dates: start: 20050111, end: 20050111
  20. TACROLIMUS [Concomitant]
     Route: 048
     Dates: start: 20050112, end: 20050112
  21. TACROLIMUS [Concomitant]
     Route: 048
     Dates: start: 20050113, end: 20050117
  22. TACROLIMUS [Concomitant]
     Route: 048
     Dates: start: 20050118, end: 20050124
  23. TACROLIMUS [Concomitant]
     Route: 048
     Dates: start: 20050125, end: 20050131
  24. TACROLIMUS [Concomitant]
     Route: 048
     Dates: start: 20050201, end: 20050202
  25. TACROLIMUS [Concomitant]
     Route: 048
     Dates: start: 20050203, end: 20050204
  26. TACROLIMUS [Concomitant]
     Route: 048
     Dates: start: 20050205, end: 20050206
  27. TACROLIMUS [Concomitant]
     Route: 048
     Dates: start: 20050207, end: 20050207
  28. TACROLIMUS [Concomitant]
     Route: 048
     Dates: start: 20050208, end: 20050208
  29. TACROLIMUS [Concomitant]
     Route: 048
     Dates: start: 20050209, end: 20050209
  30. TACROLIMUS [Concomitant]
     Route: 048
     Dates: start: 20050210, end: 20050214
  31. TACROLIMUS [Concomitant]
     Route: 048
     Dates: start: 20050215, end: 20050217
  32. TACROLIMUS [Concomitant]
     Route: 048
     Dates: start: 20050218, end: 20050221
  33. TACROLIMUS [Concomitant]
     Route: 048
     Dates: start: 20050222, end: 20050228
  34. TACROLIMUS [Concomitant]
     Route: 048
     Dates: start: 20050301, end: 20050328
  35. TACROLIMUS [Concomitant]
     Route: 048
     Dates: start: 20050329, end: 20050404
  36. TACROLIMUS [Concomitant]
     Route: 048
     Dates: start: 20050405, end: 20050411
  37. SOLU-MEDROL [Concomitant]
     Indication: PROPHYLAXIS AGAINST TRANSPLANT REJECTION
     Dates: start: 20050104, end: 20050104
  38. SOLU-MEDROL [Concomitant]
     Dates: start: 20050105, end: 20050105

REACTIONS (5)
  - HYPOCALCAEMIA [None]
  - HYPOKALAEMIA [None]
  - MALAISE [None]
  - NAUSEA [None]
  - URINARY TRACT INFECTION [None]
